FAERS Safety Report 10220603 (Version 1)
Quarter: 2014Q2

REPORT INFORMATION
  Report Type: Spontaneous
  Country: US (occurrence: None)
  Receive Date: 20140605
  Receipt Date: 20140605
  Transmission Date: 20141212
  Serious: Yes (Congenital Anomaly)
  Sender: FDA-Public Use
  Company Number: None

PATIENT
  Age: 04 Month
  Sex: Female
  Weight: 10.89 kg

DRUGS (2)
  1. TERBUTALINE [Suspect]
     Dates: start: 20111001, end: 20120221
  2. TERBUTALINE [Suspect]
     Indication: FOETAL DISTRESS SYNDROME
     Dates: start: 20111001, end: 20120221

REACTIONS (5)
  - Developmental delay [None]
  - Hypotonia [None]
  - Speech disorder developmental [None]
  - Maternal drugs affecting foetus [None]
  - Childhood disintegrative disorder [None]
